FAERS Safety Report 9845065 (Version 1)
Quarter: 2014Q1

REPORT INFORMATION
  Report Type: Spontaneous
  Country: ES (occurrence: None)
  Receive Date: 20140122
  Receipt Date: 20140122
  Transmission Date: 20141002
  Serious: Yes (Hospitalization)
  Sender: FDA-Public Use
  Company Number: 2014P1000229

PATIENT
  Age: 11 Year
  Sex: Female

DRUGS (1)
  1. TOPIRAMATE [Suspect]
     Indication: MIGRAINE

REACTIONS (7)
  - Heat stroke [None]
  - Cardiac output decreased [None]
  - Prerenal failure [None]
  - Hypertransaminasaemia [None]
  - Blood creatine phosphokinase increased [None]
  - Aspartate aminotransferase increased [None]
  - Troponin increased [None]
